FAERS Safety Report 6670449-5 (Version None)
Quarter: 2010Q2

REPORT INFORMATION
  Report Type: 
  Country: None (occurrence: None)
  Receive Date: 20100407
  Receipt Date: 20100331
  Transmission Date: 20101027
  Serious: No
  Sender: FDA-Public Use
  Company Number: US-BIOGENIDEC-2009BI041565

PATIENT
  Sex: Male

DRUGS (1)
  1. TYSABRI [Suspect]
     Indication: MULTIPLE SCLEROSIS
     Route: 042
     Dates: start: 20080810

REACTIONS (13)
  - ADVERSE DRUG REACTION [None]
  - ARTHRALGIA [None]
  - DEMENTIA [None]
  - FALL [None]
  - FATIGUE [None]
  - HYPOAESTHESIA [None]
  - JOINT INJURY [None]
  - MASS [None]
  - MUSCLE FATIGUE [None]
  - MUSCLE RUPTURE [None]
  - PROSTATIC DISORDER [None]
  - ROTATOR CUFF SYNDROME [None]
  - SENSORY DISTURBANCE [None]
